FAERS Safety Report 11821674 (Version 1)
Quarter: 2015Q4

REPORT INFORMATION
  Report Type: Spontaneous
  Country: US (occurrence: US)
  Receive Date: 20151210
  Receipt Date: 20151210
  Transmission Date: 20160305
  Serious: Yes (Hospitalization)
  Sender: FDA-Public Use
  Company Number: US-JNJFOC-20150509450

PATIENT
  Age: 82 Year
  Sex: Male

DRUGS (11)
  1. LEVOTHYROXINE. [Concomitant]
     Active Substance: LEVOTHYROXINE
  2. XARELTO [Concomitant]
     Active Substance: RIVAROXABAN
  3. IMBRUVICA [Suspect]
     Active Substance: IBRUTINIB
     Indication: DIFFUSE LARGE B-CELL LYMPHOMA
     Route: 048
     Dates: start: 20131220
  4. MULTIVITAMINS [Concomitant]
     Active Substance: VITAMINS
  5. HYDROCORTISONE. [Concomitant]
     Active Substance: HYDROCORTISONE
  6. ANDROGEL [Concomitant]
     Active Substance: TESTOSTERONE
  7. FLAGYL [Concomitant]
     Active Substance: METRONIDAZOLE\METRONIDAZOLE HYDROCHLORIDE
  8. PROTONIX [Concomitant]
     Active Substance: PANTOPRAZOLE SODIUM
  9. BIAXIN [Concomitant]
     Active Substance: CLARITHROMYCIN
  10. PACERONE [Concomitant]
     Active Substance: AMIODARONE HYDROCHLORIDE
  11. METOPROLOL TARTRATE. [Concomitant]
     Active Substance: METOPROLOL TARTRATE

REACTIONS (1)
  - Respiratory tract infection viral [Unknown]

NARRATIVE: CASE EVENT DATE: 201505
